FAERS Safety Report 26131650 (Version 1)
Quarter: 2025Q4

REPORT INFORMATION
  Report Type: Spontaneous
  Country: US (occurrence: US)
  Receive Date: 20251208
  Receipt Date: 20251208
  Transmission Date: 20260118
  Serious: No
  Sender: MYLAN
  Company Number: US-MYLANLABS-2025M1102683

PATIENT

DRUGS (3)
  1. XANAX [Suspect]
     Active Substance: ALPRAZOLAM
     Indication: Anxiety
     Dosage: 0.5 MILLIGRAM, PRN (TWO TIMES DAILY AS NEEDED)
  2. PROCARDIA [Concomitant]
     Active Substance: NIFEDIPINE
     Dosage: 60 MILLIGRAM, BID (2 TABLETS, TWO TIMES A DAY)
  3. ALDACTONE [Concomitant]
     Active Substance: SPIRONOLACTONE
     Dosage: UNK, QD (TAKE 0.5 TABLET DAILY)

REACTIONS (1)
  - Off label use [Unknown]
